FAERS Safety Report 14527003 (Version 1)
Quarter: 2018Q1

REPORT INFORMATION
  Report Type: Spontaneous
  Country: US (occurrence: US)
  Receive Date: 20180212
  Receipt Date: 20180212
  Transmission Date: 20180509
  Serious: Yes (Hospitalization)
  Sender: FDA-Public Use
  Company Number: None

PATIENT
  Sex: Male
  Weight: 119.25 kg

DRUGS (1)
  1. TAMIFLU [Suspect]
     Active Substance: OSELTAMIVIR PHOSPHATE
     Dosage: ?          QUANTITY:1 CAPSULE(S);?
     Route: 048

REACTIONS (12)
  - Nausea [None]
  - Sleep disorder [None]
  - Social anxiety disorder [None]
  - Amnesia [None]
  - Anxiety [None]
  - Headache [None]
  - Fall [None]
  - Confusional state [None]
  - Rash [None]
  - Hyperhidrosis [None]
  - Pruritus [None]
  - Joint lock [None]

NARRATIVE: CASE EVENT DATE: 20180127
